FAERS Safety Report 14389715 (Version 1)
Quarter: 2018Q1

REPORT INFORMATION
  Report Type: Spontaneous
  Country: US (occurrence: US)
  Receive Date: 20180115
  Receipt Date: 20180115
  Transmission Date: 20180509
  Serious: No
  Sender: FDA-Public Use
  Company Number: US-BAUSCH-BL-2017-014218

PATIENT
  Age: 69 Year
  Sex: Female

DRUGS (2)
  1. CARVEDILOL. [Concomitant]
     Active Substance: CARVEDILOL
     Indication: PRODUCT USED FOR UNKNOWN INDICATION
     Route: 048
     Dates: start: 2014
  2. OCEANSIDE NIFEDIPINE ER TABLETS 30MG [Suspect]
     Active Substance: NIFEDIPINE
     Indication: BLOOD PRESSURE INCREASED
     Route: 048
     Dates: start: 201704

REACTIONS (2)
  - Coeliac disease [Recovered/Resolved]
  - Symptom recurrence [None]

NARRATIVE: CASE EVENT DATE: 2017
